FAERS Safety Report 15764771 (Version 1)
Quarter: 2018Q4

REPORT INFORMATION
  Report Type: Spontaneous
  Country: ES (occurrence: ES)
  Receive Date: 20181227
  Receipt Date: 20181227
  Transmission Date: 20190205
  Serious: Yes (Other)
  Sender: FDA-Public Use
  Company Number: ES-BAYER-2018-112472

PATIENT
  Age: 32 Year
  Sex: Male

DRUGS (2)
  1. ACETYLSALICYLIC ACID({=100 MG) [Suspect]
     Active Substance: ASPIRIN
     Indication: COLITIS ULCERATIVE
     Dosage: UNK
  2. AZATHIOPRINE. [Concomitant]
     Active Substance: AZATHIOPRINE
     Indication: COLITIS ULCERATIVE

REACTIONS (6)
  - Retinal haemorrhage [Unknown]
  - Visual field defect [Unknown]
  - Visual acuity reduced [Recovering/Resolving]
  - Retinal artery occlusion [Unknown]
  - Venous thrombosis [Unknown]
  - Retinal vein occlusion [Unknown]
